FAERS Safety Report 24569067 (Version 3)
Quarter: 2024Q4

REPORT INFORMATION
  Report Type: Spontaneous
  Country: JP (occurrence: JP)
  Receive Date: 20241031
  Receipt Date: 20241126
  Transmission Date: 20250115
  Serious: Yes (Hospitalization)
  Sender: PFIZER
  Company Number: JP-PFIZER INC-202400289108

PATIENT
  Age: 26 Year
  Sex: Female
  Weight: 61 kg

DRUGS (3)
  1. AZITHROMYCIN DIHYDRATE [Suspect]
     Active Substance: AZITHROMYCIN DIHYDRATE
     Indication: Chlamydial infection
     Dosage: UNK
     Dates: start: 20240412
  2. CLARITIN REDITABS [Concomitant]
     Active Substance: LORATADINE
     Indication: Rhinitis allergic
     Dosage: 10 MG, 1X/DAY
     Dates: start: 20240420, end: 20240518
  3. MAGNESIUM OXIDE [Concomitant]
     Active Substance: MAGNESIUM OXIDE
     Indication: Constipation
     Dosage: 330 MG, AS NEEDED (2 TABLETS AT A TIME, 3X/DAY)
     Dates: start: 20240207, end: 20240518

REACTIONS (4)
  - Maternal exposure during pregnancy [Unknown]
  - Premature labour [Recovered/Resolved]
  - Condition aggravated [Recovered/Resolved]
  - COVID-19 [Recovered/Resolved]

NARRATIVE: CASE EVENT DATE: 20240412
